FAERS Safety Report 11598288 (Version 9)
Quarter: 2018Q1

REPORT INFORMATION
  Report Type: Spontaneous
  Country: US (occurrence: US)
  Receive Date: 20151006
  Receipt Date: 20180131
  Transmission Date: 20180508
  Serious: No
  Sender: FDA-Public Use
  Company Number: US-PFIZER INC-2015120074

PATIENT
  Age: 68 Year
  Sex: Female
  Weight: 61 kg

DRUGS (28)
  1. IBRANCE [Suspect]
     Active Substance: PALBOCICLIB
     Dosage: 75 MG (1 CAPSULE), CYCLIC 75 MG, (EVERY DAY- TAKEN ON DAYS 1 THROUGH 21 THEN OFF 7 DAYS)
     Route: 048
  2. XANAX [Concomitant]
     Active Substance: ALPRAZOLAM
     Indication: PERITONEAL SARCOMA
     Dosage: 0.5 MG, UNK
  3. ASPIRIN. [Concomitant]
     Active Substance: ASPIRIN
     Dosage: 81 MG, UNK
  4. PROTONEX [Concomitant]
     Dosage: UNK
  5. IBRANCE [Suspect]
     Active Substance: PALBOCICLIB
     Dosage: 125 MG, CYCLIC (ONCE A DAY FOR 21 DAYS AND OFF FOR 7)
     Dates: start: 201503, end: 201607
  6. IBRANCE [Suspect]
     Active Substance: PALBOCICLIB
     Dosage: 125 MG, UNK
     Dates: start: 201601, end: 201601
  7. TYLENOL PM [Concomitant]
     Active Substance: ACETAMINOPHEN\DIPHENHYDRAMINE
     Dosage: UNK(25- 500 MG )
  8. IBRANCE [Suspect]
     Active Substance: PALBOCICLIB
     Dosage: 75 MG, CYCLIC (ONE TIME A DAY FOR THREE WEEKS ON AND ONE WEEK OFF)
     Route: 048
     Dates: end: 20160701
  9. IBRANCE [Suspect]
     Active Substance: PALBOCICLIB
     Dosage: 75 MG, UNK
  10. IBRANCE [Suspect]
     Active Substance: PALBOCICLIB
     Indication: SOFT TISSUE SARCOMA
     Dosage: 125 MG, CYCLIC (EVERY DAY TAKEN WITH FOOD IN A 28 DAY CYCLE-21 DAYS ON THEN 7 DAYS OFF)
     Route: 048
     Dates: start: 201503, end: 201509
  11. NORCO [Concomitant]
     Active Substance: ACETAMINOPHEN\HYDROCODONE BITARTRATE
     Dosage: UNK(5-325 MG )
  12. LISINOPRIL. [Concomitant]
     Active Substance: LISINOPRIL
     Indication: BLOOD PRESSURE MEASUREMENT
     Dosage: 20 MG, 1X/DAY
     Route: 048
  13. CENTRUM SILVER [Concomitant]
     Active Substance: MINERALS\VITAMINS
     Dosage: UNK
  14. CARAFATE [Concomitant]
     Active Substance: SUCRALFATE
     Dosage: UNK
     Route: 048
  15. LOVASTATIN. [Concomitant]
     Active Substance: LOVASTATIN
     Indication: BLOOD CHOLESTEROL INCREASED
     Dosage: 40 MG, 1X/DAY
     Route: 048
  16. SIMETHICONE (DIMETHICONE) [Concomitant]
     Active Substance: DIMETHICONE
     Dosage: 80 MG, UNK
  17. ONDANSETRON [Concomitant]
     Active Substance: ONDANSETRON
     Indication: NAUSEA
     Dosage: UNK UNK, AS NEEDED
  18. TYLENOL [Concomitant]
     Active Substance: ACETAMINOPHEN
     Dosage: 500 MG, UNK
  19. CALCIUM CARBONATE. [Concomitant]
     Active Substance: CALCIUM CARBONATE
     Dosage: 1000 MG, UNK
  20. VITAMIN D3 [Concomitant]
     Active Substance: CHOLECALCIFEROL
     Dosage: 1000 IU, UNK
  21. LISINOPRIL. [Concomitant]
     Active Substance: LISINOPRIL
     Indication: HYPERTENSION
     Dosage: 40 MG, UNK
  22. IMODIUM A-D [Concomitant]
     Active Substance: LOPERAMIDE HYDROCHLORIDE
     Dosage: 2 MG, UNK
  23. PREDNISONE. [Concomitant]
     Active Substance: PREDNISONE
     Dosage: 20 MG, UNK
  24. OXYCODONE [Concomitant]
     Active Substance: OXYCODONE
     Dosage: UNK, AS NEEDED
  25. LOPERAMIDE [Concomitant]
     Active Substance: LOPERAMIDE
     Dosage: UNK, AS NEEDED
  26. IBRANCE [Suspect]
     Active Substance: PALBOCICLIB
     Dosage: 125 MG, CYCLIC (TAKE FOR 21 DAYS AND THEN OFF FOR 7, ONCE PER DAY)
     Route: 048
     Dates: start: 201503, end: 20150914
  27. IBRANCE [Suspect]
     Active Substance: PALBOCICLIB
     Dosage: 100 MG, UNK
  28. TYLENOL [Concomitant]
     Active Substance: ACETAMINOPHEN
     Dosage: UNK, AS NEEDED

REACTIONS (6)
  - Product use in unapproved indication [Unknown]
  - Malaise [Unknown]
  - Abdominal discomfort [Unknown]
  - Fatigue [Not Recovered/Not Resolved]
  - Vomiting [Recovered/Resolved]
  - Diarrhoea [Recovered/Resolved]

NARRATIVE: CASE EVENT DATE: 2015
